FAERS Safety Report 19762652 (Version 3)
Quarter: 2021Q3

REPORT INFORMATION
  Report Type: Report from Study
  Country: TR (occurrence: TR)
  Receive Date: 20210828
  Receipt Date: 20210919
  Transmission Date: 20211014
  Serious: Yes (Death, Life-Threatening, Hospitalization)
  Sender: FDA-Public Use
  Company Number: NVSC2021TR193055

PATIENT
  Age: 83 Year
  Sex: Female
  Weight: 62 kg

DRUGS (2)
  1. INC280 [Suspect]
     Active Substance: CAPMATINIB
     Indication: NON-SMALL CELL LUNG CANCER
     Dosage: 400 MG, BID
     Route: 048
     Dates: start: 20210811, end: 20210818
  2. INDAPAMIDE. [Suspect]
     Active Substance: INDAPAMIDE
     Indication: HYPERTENSION
     Dosage: 15 MG, QD
     Route: 065
     Dates: start: 20200410, end: 20210818

REACTIONS (13)
  - Malignant neoplasm progression [Fatal]
  - Hypotension [Fatal]
  - Hyponatraemia [Recovering/Resolving]
  - Tachycardia [Unknown]
  - Abdominal pain [Unknown]
  - Cardio-respiratory arrest [Fatal]
  - Intestinal perforation [Not Recovered/Not Resolved]
  - Fatigue [Unknown]
  - Intestinal diaphragm disease [Unknown]
  - Intra-abdominal fluid collection [Unknown]
  - Hypoalbuminaemia [Recovering/Resolving]
  - Septic shock [Fatal]
  - Tenderness [Unknown]

NARRATIVE: CASE EVENT DATE: 20210818
